FAERS Safety Report 17374726 (Version 1)
Quarter: 2020Q1

REPORT INFORMATION
  Report Type: Report from Study
  Country: None (occurrence: SE)
  Receive Date: 20200206
  Receipt Date: 20200206
  Transmission Date: 20200409
  Serious: Yes (Hospitalization)
  Sender: FDA-Public Use
  Company Number: SE-ABBVIE-20K-150-3262392-00

PATIENT
  Age: 71 Year
  Sex: Male

DRUGS (2)
  1. LEVOCAR [Concomitant]
     Indication: PRODUCT USED FOR UNKNOWN INDICATION
     Dosage: 2 AT NIGHT
  2. DUODOPA [Suspect]
     Active Substance: CARBIDOPA\LEVODOPA
     Indication: PARKINSON^S DISEASE
     Route: 050
     Dates: start: 20200122

REACTIONS (7)
  - Joint range of motion decreased [Unknown]
  - On and off phenomenon [Unknown]
  - Insomnia [Not Recovered/Not Resolved]
  - Fall [Unknown]
  - Musculoskeletal stiffness [Unknown]
  - Drug ineffective [Not Recovered/Not Resolved]
  - Anxiety [Not Recovered/Not Resolved]

NARRATIVE: CASE EVENT DATE: 2020
